FAERS Safety Report 6960312-4 (Version None)
Quarter: 2010Q3

REPORT INFORMATION
  Report Type: 
  Country: None (occurrence: None)
  Receive Date: 20100901
  Receipt Date: 20100826
  Transmission Date: 20110219
  Serious: Yes (Life-Threatening, Other)
  Sender: FDA-Public Use
  Company Number: JP-ASTRAZENECA-2010SE40567

PATIENT
  Age: 32 Year
  Sex: Male

DRUGS (8)
  1. SEROQUEL [Suspect]
     Indication: SCHIZOPHRENIA
     Route: 048
     Dates: start: 20100806, end: 20100809
  2. RISPERDAL [Suspect]
     Route: 048
     Dates: end: 20100809
  3. TRIHEXIN [Suspect]
     Route: 048
     Dates: end: 20100809
  4. HIBERNA [Suspect]
     Route: 048
     Dates: end: 20100809
  5. ALOSENN [Suspect]
     Route: 048
     Dates: end: 20100809
  6. PURSENNID [Suspect]
     Route: 048
     Dates: end: 20100809
  7. BENZALIN [Suspect]
     Route: 048
     Dates: end: 20100809
  8. LODOPIN [Concomitant]
     Dates: end: 20100809

REACTIONS (2)
  - BLOOD CREATINE PHOSPHOKINASE INCREASED [None]
  - LIVER DISORDER [None]
